FAERS Safety Report 5152963-7 (Version None)
Quarter: 2006Q4

REPORT INFORMATION
  Report Type: 
  Country: None (occurrence: None)
  Receive Date: 20061117
  Receipt Date: 20060801
  Transmission Date: 20070319
  Serious: Yes (Hospitalization)
  Sender: FDA-Public Use
  Company Number: FR-ELI_LILLY_AND_COMPANY-FR200608000535

PATIENT
  Age: 82 Year
  Sex: Female

DRUGS (4)
  1. FORTEO [Suspect]
     Indication: OSTEOPOROSIS
     Dosage: 20 UG, DAILY (1/D)
     Route: 058
     Dates: start: 20050314
  2. LOXEN [Concomitant]
     Dosage: 1.5 D/F, DAILY (1/D)
     Route: 048
  3. CACIT [Concomitant]
     Dosage: 1 D/F, DAILY (1/D)
     Route: 048
  4. DEDROGYL [Concomitant]
     Dosage: 3 GTT, DAILY (1/D)
     Route: 047

REACTIONS (2)
  - FALL [None]
  - FEMUR FRACTURE [None]
